FAERS Safety Report 8329708-2 (Version None)
Quarter: 2012Q2

REPORT INFORMATION
  Report Type: 
  Country: None (occurrence: None)
  Receive Date: 20120502
  Receipt Date: 20120425
  Transmission Date: 20120825
  Serious: Yes (Hospitalization)
  Sender: FDA-Public Use
  Company Number: FR-GLAXOSMITHKLINE-B0796761A

PATIENT
  Age: 14 Year
  Sex: Female

DRUGS (1)
  1. ALBUTEROL [Suspect]
     Indication: PRODUCT USED FOR UNKNOWN INDICATION
     Route: 065

REACTIONS (4)
  - PERIPHERAL COLDNESS [None]
  - BURNS FIRST DEGREE [None]
  - INTENTIONAL DRUG MISUSE [None]
  - BURNING SENSATION [None]
